FAERS Safety Report 20502563 (Version 1)
Quarter: 2022Q1

REPORT INFORMATION
  Report Type: Spontaneous
  Country: US (occurrence: None)
  Receive Date: 20220221
  Receipt Date: 20220221
  Transmission Date: 20220423
  Serious: Yes (Other)
  Sender: FDA-Public Use
  Company Number: None

PATIENT
  Age: 76 Year
  Sex: Female

DRUGS (1)
  1. CAPECITABINE [Suspect]
     Active Substance: CAPECITABINE
     Indication: Colon cancer
     Dosage: FREQUENCY : DAILY; FOR 7 DAYS?
     Route: 048
     Dates: start: 201903, end: 202201

REACTIONS (4)
  - Peripheral swelling [None]
  - Neuropathy peripheral [None]
  - Recurrent cancer [None]
  - Metastatic neoplasm [None]

NARRATIVE: CASE EVENT DATE: 20210115
